FAERS Safety Report 18768865 (Version 1)
Quarter: 2021Q1

REPORT INFORMATION
  Report Type: Spontaneous
  Country: US (occurrence: US)
  Receive Date: 20210121
  Receipt Date: 20210121
  Transmission Date: 20210419
  Serious: No
  Sender: FDA-Public Use
  Company Number: US-009507513-2101USA008197

PATIENT
  Age: 36 Year
  Sex: Female
  Weight: 144.22 kg

DRUGS (1)
  1. NEXPLANON [Suspect]
     Active Substance: ETONOGESTREL
     Indication: CONTRACEPTION
     Dosage: 1 IMPLANT (68 MILLIGRAM) IN THE LEFT ARM
     Dates: start: 20170214

REACTIONS (5)
  - Device issue [Not Recovered/Not Resolved]
  - Device deployment issue [Not Recovered/Not Resolved]
  - Pain in extremity [Not Recovered/Not Resolved]
  - Complication associated with device [Recovered/Resolved]
  - Incorrect product administration duration [Unknown]

NARRATIVE: CASE EVENT DATE: 20170214
